FAERS Safety Report 14328090 (Version 1)
Quarter: 2017Q4

REPORT INFORMATION
  Report Type: Spontaneous
  Country: US (occurrence: US)
  Receive Date: 20171227
  Receipt Date: 20171227
  Transmission Date: 20180321
  Serious: Yes (Other)
  Sender: FDA-Public Use
  Company Number: US-JNJFOC-20171231574

PATIENT
  Age: 68 Year
  Sex: Male

DRUGS (1)
  1. INVOKANA [Suspect]
     Active Substance: CANAGLIFLOZIN
     Indication: PRODUCT USED FOR UNKNOWN INDICATION
     Route: 048
     Dates: start: 20161002, end: 20170105

REACTIONS (2)
  - Diabetic foot [Unknown]
  - Metatarsal excision [Recovering/Resolving]

NARRATIVE: CASE EVENT DATE: 20170105
